FAERS Safety Report 9375178 (Version 1)
Quarter: 2013Q2

REPORT INFORMATION
  Report Type: Report from Study
  Country: ES (occurrence: ES)
  Receive Date: 20130628
  Receipt Date: 20130628
  Transmission Date: 20140414
  Serious: Yes (Other)
  Sender: FDA-Public Use
  Company Number: ES-ASTELLAS-2013EU005414

PATIENT
  Age: 72 Year
  Sex: Male

DRUGS (1)
  1. ENZALUTAMIDE [Suspect]
     Indication: PROSTATE CANCER
     Dosage: 160 MG, UNKNOWN/D
     Route: 048
     Dates: start: 20121217, end: 20130617

REACTIONS (7)
  - Mental impairment [Recovered/Resolved]
  - Insomnia [Unknown]
  - Nightmare [Unknown]
  - Hallucination [Unknown]
  - Asthenia [Unknown]
  - Decreased appetite [Unknown]
  - Disorientation [Unknown]
